FAERS Safety Report 25353816 (Version 1)
Quarter: 2025Q2

REPORT INFORMATION
  Report Type: Spontaneous
  Country: IT (occurrence: IT)
  Receive Date: 20250523
  Receipt Date: 20250523
  Transmission Date: 20250717
  Serious: Yes (Other)
  Sender: MYLAN
  Company Number: None

PATIENT
  Age: 54 Year
  Sex: Male
  Weight: 80 kg

DRUGS (36)
  1. FENOFIBRATE [Interacting]
     Active Substance: FENOFIBRATE
     Indication: Type IIa hyperlipidaemia
     Dosage: 145 MILLIGRAM, QD (145 MG 1 TABLET A DAY)
     Dates: start: 2016, end: 20241010
  2. FENOFIBRATE [Interacting]
     Active Substance: FENOFIBRATE
     Indication: Hyperlipidaemia
     Dosage: 145 MILLIGRAM, QD (145 MG 1 TABLET A DAY)
     Route: 048
     Dates: start: 2016, end: 20241010
  3. FENOFIBRATE [Interacting]
     Active Substance: FENOFIBRATE
     Indication: Hypercholesterolaemia
     Dosage: 145 MILLIGRAM, QD (145 MG 1 TABLET A DAY)
     Route: 048
     Dates: start: 2016, end: 20241010
  4. FENOFIBRATE [Interacting]
     Active Substance: FENOFIBRATE
     Dosage: 145 MILLIGRAM, QD (145 MG 1 TABLET A DAY)
     Dates: start: 2016, end: 20241010
  5. EZETIMIBE [Interacting]
     Active Substance: EZETIMIBE
     Indication: Hyperlipidaemia
     Dosage: 10 MILLIGRAM, QD
  6. EZETIMIBE [Interacting]
     Active Substance: EZETIMIBE
     Dosage: 10 MILLIGRAM, QD
     Route: 065
  7. EZETIMIBE [Interacting]
     Active Substance: EZETIMIBE
     Dosage: 10 MILLIGRAM, QD
     Route: 065
  8. EZETIMIBE [Interacting]
     Active Substance: EZETIMIBE
     Dosage: 10 MILLIGRAM, QD
  9. BISOPROLOL [Suspect]
     Active Substance: BISOPROLOL
     Indication: Hyperlipidaemia
     Dosage: 1.25 MILLIGRAM, BID (1.25 MG 2 TABLET IN THE MORNING + 1 TABLET IN THE EVENING)
  10. BISOPROLOL [Suspect]
     Active Substance: BISOPROLOL
     Indication: Hypercholesterolaemia
     Dosage: 1.25 MILLIGRAM, BID (1.25 MG 2 TABLET IN THE MORNING + 1 TABLET IN THE EVENING)
     Route: 048
  11. BISOPROLOL [Suspect]
     Active Substance: BISOPROLOL
     Dosage: 1.25 MILLIGRAM, BID (1.25 MG 2 TABLET IN THE MORNING + 1 TABLET IN THE EVENING)
     Route: 048
  12. BISOPROLOL [Suspect]
     Active Substance: BISOPROLOL
     Dosage: 1.25 MILLIGRAM, BID (1.25 MG 2 TABLET IN THE MORNING + 1 TABLET IN THE EVENING)
  13. VALSARTAN [Suspect]
     Active Substance: VALSARTAN
     Indication: Hyperlipidaemia
     Dosage: 80 MILLIGRAM, QD (80 MG 1 TABLET A DAY)
  14. VALSARTAN [Suspect]
     Active Substance: VALSARTAN
     Dosage: 80 MILLIGRAM, QD (80 MG 1 TABLET A DAY)
     Route: 048
  15. VALSARTAN [Suspect]
     Active Substance: VALSARTAN
     Dosage: 80 MILLIGRAM, QD (80 MG 1 TABLET A DAY)
     Route: 048
  16. VALSARTAN [Suspect]
     Active Substance: VALSARTAN
     Dosage: 80 MILLIGRAM, QD (80 MG 1 TABLET A DAY)
  17. PANTOPRAZOLE [Suspect]
     Active Substance: PANTOPRAZOLE
     Indication: Hyperlipidaemia
     Dosage: 20 MILLIGRAM, QD (20 MG 1 TABLET A DAY)
  18. PANTOPRAZOLE [Suspect]
     Active Substance: PANTOPRAZOLE
     Dosage: 20 MILLIGRAM, QD (20 MG 1 TABLET A DAY)
     Route: 048
  19. PANTOPRAZOLE [Suspect]
     Active Substance: PANTOPRAZOLE
     Dosage: 20 MILLIGRAM, QD (20 MG 1 TABLET A DAY)
     Route: 048
  20. PANTOPRAZOLE [Suspect]
     Active Substance: PANTOPRAZOLE
     Dosage: 20 MILLIGRAM, QD (20 MG 1 TABLET A DAY)
  21. BEMPEDOIC ACID [Suspect]
     Active Substance: BEMPEDOIC ACID
     Indication: Type IIa hyperlipidaemia
     Dosage: 180 MILLIGRAM, QD (180 MG 1 TABLET A DAY)
     Dates: start: 20230501
  22. BEMPEDOIC ACID [Suspect]
     Active Substance: BEMPEDOIC ACID
     Indication: Hypercholesterolaemia
     Dosage: 180 MILLIGRAM, QD (180 MG 1 TABLET A DAY)
     Route: 048
     Dates: start: 20230501
  23. BEMPEDOIC ACID [Suspect]
     Active Substance: BEMPEDOIC ACID
     Dosage: 180 MILLIGRAM, QD (180 MG 1 TABLET A DAY)
     Route: 048
     Dates: start: 20230501
  24. BEMPEDOIC ACID [Suspect]
     Active Substance: BEMPEDOIC ACID
     Dosage: 180 MILLIGRAM, QD (180 MG 1 TABLET A DAY)
     Dates: start: 20230501
  25. EVOLOCUMAB [Suspect]
     Active Substance: EVOLOCUMAB
     Indication: Type IIa hyperlipidaemia
     Dosage: 140 MG, Q28D (140 MG SUBCUTANEOUSLY 3 VIALS EVERY 4 WEEKS), 420 MG, EVERY 28 DAYS (EVERY 4 WEEKS)
  26. EVOLOCUMAB [Suspect]
     Active Substance: EVOLOCUMAB
     Indication: Hyperlipidaemia
     Dosage: 140 MG, Q28D (140 MG SUBCUTANEOUSLY 3 VIALS EVERY 4 WEEKS), 420 MG, EVERY 28 DAYS (EVERY 4 WEEKS)
     Route: 058
  27. EVOLOCUMAB [Suspect]
     Active Substance: EVOLOCUMAB
     Dosage: 140 MG, Q28D (140 MG SUBCUTANEOUSLY 3 VIALS EVERY 4 WEEKS), 420 MG, EVERY 28 DAYS (EVERY 4 WEEKS)
     Route: 058
  28. EVOLOCUMAB [Suspect]
     Active Substance: EVOLOCUMAB
     Dosage: 140 MG, Q28D (140 MG SUBCUTANEOUSLY 3 VIALS EVERY 4 WEEKS), 420 MG, EVERY 28 DAYS (EVERY 4 WEEKS)
  29. RANOLAZINE [Suspect]
     Active Substance: RANOLAZINE
     Indication: Hypercholesterolaemia
     Dosage: 375 MILLIGRAM, BIWEELY (750 MG, QW)
  30. RANOLAZINE [Suspect]
     Active Substance: RANOLAZINE
     Indication: Hyperlipidaemia
     Dosage: 375 MILLIGRAM, BIWEELY (750 MG, QW)
     Route: 048
  31. RANOLAZINE [Suspect]
     Active Substance: RANOLAZINE
     Dosage: 375 MILLIGRAM, BIWEELY (750 MG, QW)
     Route: 048
  32. RANOLAZINE [Suspect]
     Active Substance: RANOLAZINE
     Dosage: 375 MILLIGRAM, BIWEELY (750 MG, QW)
  33. LEVOTHYROXINE [Suspect]
     Active Substance: LEVOTHYROXINE
     Indication: Hyperlipidaemia
     Dosage: 175 MICROGRAM, QD (175 MCG 1 TABLET A DAY)
  34. LEVOTHYROXINE [Suspect]
     Active Substance: LEVOTHYROXINE
     Dosage: 175 MICROGRAM, QD (175 MCG 1 TABLET A DAY)
     Route: 048
  35. LEVOTHYROXINE [Suspect]
     Active Substance: LEVOTHYROXINE
     Dosage: 175 MICROGRAM, QD (175 MCG 1 TABLET A DAY)
     Route: 048
  36. LEVOTHYROXINE [Suspect]
     Active Substance: LEVOTHYROXINE
     Dosage: 175 MICROGRAM, QD (175 MCG 1 TABLET A DAY)

REACTIONS (2)
  - High density lipoprotein decreased [Recovering/Resolving]
  - Drug interaction [Unknown]

NARRATIVE: CASE EVENT DATE: 20240905
